FAERS Safety Report 5316520-1 (Version None)
Quarter: 2007Q2

REPORT INFORMATION
  Report Type: 
  Country: None (occurrence: None)
  Receive Date: 20070504
  Receipt Date: 20070424
  Transmission Date: 20071010
  Serious: Yes (Hospitalization, Other)
  Sender: FDA-Public Use
  Company Number: FR-ABBOTT-07P-056-0366015-00

PATIENT
  Sex: Male

DRUGS (18)
  1. DEPAKENE [Suspect]
     Indication: PARTIAL SEIZURES
     Route: 048
     Dates: start: 20070312, end: 20070315
  2. DEPAKENE [Suspect]
     Route: 048
  3. DEPACON [Suspect]
     Indication: PARTIAL SEIZURES
     Route: 042
     Dates: start: 20070308
  4. DEPACON [Suspect]
     Route: 042
     Dates: end: 20070312
  5. LEVETIRACETAM [Suspect]
     Indication: PARTIAL SEIZURES
     Route: 048
     Dates: start: 20070309, end: 20070310
  6. LEVETIRACETAM [Suspect]
     Indication: STATUS EPILEPTICUS
     Route: 048
     Dates: start: 20070311, end: 20070312
  7. PANTOPRAZOLE [Concomitant]
     Indication: DRUG USE FOR UNKNOWN INDICATION
     Route: 048
     Dates: end: 20070315
  8. FLUCONAZOLE [Concomitant]
     Indication: DRUG USE FOR UNKNOWN INDICATION
     Route: 048
     Dates: end: 20070315
  9. MIANSERIN HYDROCHLORIDE [Concomitant]
     Indication: DRUG USE FOR UNKNOWN INDICATION
     Route: 048
     Dates: end: 20070301
  10. PEFLOXACIN MESILATE [Concomitant]
     Indication: STAPHYLOCOCCAL INFECTION
     Route: 065
     Dates: end: 20070212
  11. PEFLOXACIN MESILATE [Concomitant]
     Route: 065
     Dates: start: 20070213
  12. ACENOCOUMAROL [Concomitant]
     Indication: ATRIAL FIBRILLATION
     Route: 048
     Dates: start: 20070212
  13. ACEBUTOLOL [Concomitant]
     Indication: DRUG USE FOR UNKNOWN INDICATION
  14. FINASTERIDE [Concomitant]
     Indication: DRUG USE FOR UNKNOWN INDICATION
     Route: 048
  15. PRAZEPAM [Concomitant]
     Indication: DRUG USE FOR UNKNOWN INDICATION
     Route: 048
  16. DIANTALVIC [Concomitant]
     Indication: DRUG USE FOR UNKNOWN INDICATION
     Route: 048
  17. TRIMETAZIDINE HYDROCHLORIDE [Concomitant]
     Indication: DRUG USE FOR UNKNOWN INDICATION
     Route: 048
  18. FUROSEMIDE [Concomitant]
     Indication: DRUG USE FOR UNKNOWN INDICATION
     Route: 048

REACTIONS (8)
  - APRAXIA [None]
  - BRADYCARDIA [None]
  - DRUG LEVEL INCREASED [None]
  - ENCEPHALOPATHY [None]
  - PLATELET COUNT DECREASED [None]
  - SOMNOLENCE [None]
  - STATUS EPILEPTICUS [None]
  - TONIC CLONIC MOVEMENTS [None]
